FAERS Safety Report 14271981 (Version 1)
Quarter: 2017Q4

REPORT INFORMATION
  Report Type: Spontaneous
  Country: GB (occurrence: GB)
  Receive Date: 20171211
  Receipt Date: 20171211
  Transmission Date: 20180321
  Serious: Yes (Other)
  Sender: FDA-Public Use
  Company Number: GB-OTSUKA-2017_003399

PATIENT
  Age: 56 Year
  Sex: Female

DRUGS (1)
  1. ABILIFY [Suspect]
     Active Substance: ARIPIPRAZOLE
     Indication: DEPRESSION
     Dosage: 15 MG, QD
     Route: 048

REACTIONS (11)
  - Muscle twitching [Unknown]
  - Insomnia [Unknown]
  - Heart rate increased [Unknown]
  - Suicide attempt [Unknown]
  - Amnesia [Unknown]
  - Glucose tolerance impaired [Unknown]
  - Binge eating [Unknown]
  - Product use in unapproved indication [Unknown]
  - Gambling [Unknown]
  - Tremor [Unknown]
  - Weight increased [Unknown]
